FAERS Safety Report 6019789-3 (Version None)
Quarter: 2008Q4

REPORT INFORMATION
  Report Type: 
  Country: None (occurrence: None)
  Receive Date: 20081224
  Receipt Date: 20081218
  Transmission Date: 20090506
  Serious: Yes (Other)
  Sender: FDA-Public Use
  Company Number: US-GENENTECH-274132

PATIENT
  Sex: Male
  Weight: 70 kg

DRUGS (1)
  1. RANIBIZUMAB [Suspect]
     Indication: MACULAR OEDEMA
     Dosage: 0.3 MG, 1/MONTH
     Route: 031
     Dates: start: 20080129, end: 20080701

REACTIONS (1)
  - CORNEAL OEDEMA [None]
